FAERS Safety Report 9210138 (Version 5)
Quarter: 2014Q1

REPORT INFORMATION
  Report Type: Spontaneous
  Country: JP (occurrence: JP)
  Receive Date: 20130404
  Receipt Date: 20140321
  Transmission Date: 20141002
  Serious: Yes (Life-Threatening, Hospitalization, Other)
  Sender: FDA-Public Use
  Company Number: JP-ASTRAZENECA-2013SE16130

PATIENT
  Age: 27137 Day
  Sex: Female
  Weight: 49 kg

DRUGS (6)
  1. OMEPRAL INJECTION [Suspect]
     Indication: GASTRIC ULCER HAEMORRHAGE
     Route: 041
     Dates: start: 20130207, end: 20130212
  2. MEROPENEM [Suspect]
     Indication: PNEUMONIA BACTERIAL
     Route: 041
     Dates: start: 20130209, end: 20130213
  3. VANCOMYCIN [Suspect]
     Indication: PNEUMONIA BACTERIAL
     Route: 041
     Dates: start: 20130212, end: 20130221
  4. TIENAM [Suspect]
     Indication: PNEUMONIA BACTERIAL
  5. MINOPEN [Suspect]
     Indication: PNEUMONIA BACTERIAL
     Route: 041
     Dates: end: 20130213
  6. FUROSEMIDE [Concomitant]
     Route: 041
     Dates: start: 20130208, end: 20130220

REACTIONS (5)
  - Pneumonia [Unknown]
  - Cardiac failure congestive [Unknown]
  - Staphylococcal infection [Unknown]
  - Liver disorder [Recovering/Resolving]
  - Jaundice [Recovering/Resolving]
